FAERS Safety Report 7338961-3 (Version None)
Quarter: 2011Q1

REPORT INFORMATION
  Report Type: 
  Country: None (occurrence: None)
  Receive Date: 20110308
  Receipt Date: 20110223
  Transmission Date: 20110831
  Serious: Yes (Hospitalization)
  Sender: FDA-Public Use
  Company Number: FR-ELI_LILLY_AND_COMPANY-FR201102001186

PATIENT
  Age: 31 Year
  Sex: Male
  Weight: 51 kg

DRUGS (2)
  1. ZYPADHERA [Suspect]
     Indication: PSYCHOTIC DISORDER
     Dosage: 210 MG, EVERY 2WEEKS
     Route: 030
     Dates: start: 20110124
  2. ZYPREXA [Concomitant]
     Route: 048
     Dates: end: 20110124

REACTIONS (4)
  - SOMNOLENCE [None]
  - FEELING DRUNK [None]
  - FATIGUE [None]
  - DIZZINESS [None]
